FAERS Safety Report 14309524 (Version 9)
Quarter: 2020Q2

REPORT INFORMATION
  Report Type: Spontaneous
  Country: CA (occurrence: CA)
  Receive Date: 20171220
  Receipt Date: 20200430
  Transmission Date: 20200713
  Serious: Yes (Death, Hospitalization)
  Sender: FDA-Public Use
  Company Number: CA-CELGENEUS-CAN-20171205081

PATIENT
  Age: 77 Year
  Sex: Male
  Weight: 82.1 kg

DRUGS (67)
  1. MEROPENEM. [Concomitant]
     Active Substance: MEROPENEM
     Indication: PNEUMONIA FUNGAL
     Dosage: 3 GRAM
     Route: 041
     Dates: start: 20171122
  2. LEVOTHYROXINE SODIUM. [Concomitant]
     Active Substance: LEVOTHYROXINE SODIUM
     Indication: HYPOTHYROIDISM
     Dosage: .1 MILLIGRAM
     Route: 048
     Dates: start: 1987, end: 20171212
  3. TRANEXAMIC ACID. [Concomitant]
     Active Substance: TRANEXAMIC ACID
     Indication: PLATELET COUNT DECREASED
     Dosage: 2000 MILLIGRAM
     Route: 048
     Dates: start: 20171117, end: 20171210
  4. RANITIDINE HYDROCHLORIDE. [Concomitant]
     Active Substance: RANITIDINE HYDROCHLORIDE
     Indication: PROPHYLAXIS
     Dosage: 300 MILLIGRAM
     Route: 048
     Dates: start: 20171110, end: 20171207
  5. ACICLOVIR SODIUM [Concomitant]
     Active Substance: ACYCLOVIR SODIUM
     Indication: ANTIVIRAL PROPHYLAXIS
     Dosage: 800 MILLIGRAM
     Route: 048
     Dates: start: 20171110, end: 20171130
  6. ACICLOVIR SODIUM [Concomitant]
     Active Substance: ACYCLOVIR SODIUM
     Dosage: 800 MILLIGRAM
     Route: 048
     Dates: start: 20171226, end: 20171227
  7. BETAMETHASONE VALERATE. [Concomitant]
     Active Substance: BETAMETHASONE VALERATE
     Indication: RASH MACULO-PAPULAR
     Dosage: .3 PERCENT
     Route: 061
     Dates: start: 20171129, end: 20171207
  8. HALOPERIDOL DECANOATE. [Concomitant]
     Active Substance: HALOPERIDOL DECANOATE
     Indication: CONFUSIONAL STATE
     Dosage: 12 MILLIGRAM
     Route: 041
     Dates: start: 20171214, end: 20171214
  9. OXYGEN. [Concomitant]
     Active Substance: OXYGEN
     Dosage: 3 LITERS
     Route: 045
     Dates: start: 20171213, end: 20171230
  10. FUROSEMIDE SODIUM [Concomitant]
     Active Substance: FUROSEMIDE SODIUM
     Dosage: 20 MILLIGRAM
     Route: 040
     Dates: start: 20171218, end: 20171218
  11. ACICLOVIR SODIUM [Concomitant]
     Active Substance: ACYCLOVIR SODIUM
     Dosage: 600 MILLIGRAM
     Route: 041
     Dates: start: 20171207, end: 20171211
  12. VANCOMYCIN HYDROCHLORIDE. [Concomitant]
     Active Substance: VANCOMYCIN HYDROCHLORIDE
     Dosage: 1 GRAM
     Route: 041
     Dates: start: 20171220, end: 20171220
  13. POTASSIUM CHLORIDE. [Concomitant]
     Active Substance: POTASSIUM CHLORIDE
     Dosage: 40 MILLIEQUIVALENTS
     Route: 040
     Dates: start: 20171216, end: 20171217
  14. FUROSEMIDE SODIUM [Concomitant]
     Active Substance: FUROSEMIDE SODIUM
     Dosage: 20 MILLIGRAM
     Route: 040
     Dates: start: 20171204, end: 20171204
  15. ALLOPURINOL. [Concomitant]
     Active Substance: ALLOPURINOL
     Indication: PROPHYLAXIS
     Dosage: 300 MILLIGRAM
     Route: 048
     Dates: start: 20171120, end: 20171211
  16. VENETOCLAX. [Concomitant]
     Active Substance: VENETOCLAX
     Dosage: 100 MILLIGRAM
     Route: 065
     Dates: start: 20171121, end: 20171121
  17. VENETOCLAX. [Concomitant]
     Active Substance: VENETOCLAX
     Dosage: 400 MILLIGRAM
     Route: 065
     Dates: start: 20171218
  18. LEVOTHYROXINE SODIUM. [Concomitant]
     Active Substance: LEVOTHYROXINE SODIUM
     Dosage: 0.125 MILLIGRAM
     Route: 048
     Dates: start: 20171213, end: 20171229
  19. ROSUVASTATIN CALCIUM. [Concomitant]
     Active Substance: ROSUVASTATIN CALCIUM
     Indication: BLOOD CHOLESTEROL INCREASED
     Dosage: 10 MILLIGRAM
     Route: 048
     Dates: start: 1997, end: 20171204
  20. CIPROFLOXACIN HYDROCHLORIDE. [Concomitant]
     Active Substance: CIPROFLOXACIN HYDROCHLORIDE
     Indication: INFECTION PROPHYLAXIS
     Dosage: 1000 MILLIGRAM
     Route: 048
     Dates: start: 20171119, end: 20171122
  21. ERTAPENEM SODIUM [Concomitant]
     Active Substance: ERTAPENEM SODIUM
     Indication: PNEUMONIA FUNGAL
     Dosage: 1 GRAM
     Route: 041
     Dates: start: 20171129, end: 20171207
  22. SPIRONOLACTONE. [Concomitant]
     Active Substance: SPIRONOLACTONE
     Indication: OEDEMA PERIPHERAL
     Dosage: 50 MILLIGRAM
     Route: 048
     Dates: start: 20171212, end: 20171228
  23. VANCOMYCIN HYDROCHLORIDE. [Concomitant]
     Active Substance: VANCOMYCIN HYDROCHLORIDE
     Indication: ANTIBIOTIC PROPHYLAXIS
     Dosage: 1 GRAM
     Route: 041
     Dates: start: 20171111, end: 20171111
  24. QUETIAPINE FUMARATE. [Concomitant]
     Active Substance: QUETIAPINE FUMARATE
     Dosage: 300 MILLIGRAM
     Route: 048
     Dates: start: 20171218, end: 20171218
  25. MAGNESIUM SULFATE. [Concomitant]
     Active Substance: MAGNESIUM SULFATE
     Dosage: 2.5 GRAM
     Route: 041
     Dates: start: 20171124, end: 20171124
  26. NORMAL SALINE [Concomitant]
     Active Substance: SODIUM CHLORIDE
     Indication: PROPHYLAXIS
     Route: 041
  27. ACICLOVIR SODIUM [Concomitant]
     Active Substance: ACYCLOVIR SODIUM
     Dosage: 1200 MILLIGRAM
     Route: 048
     Dates: start: 20171201, end: 20171207
  28. MUCOSITIS MOUTHWASH [Concomitant]
     Indication: ORAL PAIN
     Dosage: 45 MILLILITER
     Route: 048
     Dates: start: 20171110, end: 20171207
  29. MAGNESIUM SULFATE. [Concomitant]
     Active Substance: MAGNESIUM SULFATE
     Dosage: 5 GRAM
     Route: 041
     Dates: start: 20171123, end: 20171123
  30. MAGNESIUM SULFATE. [Concomitant]
     Active Substance: MAGNESIUM SULFATE
     Dosage: 5 GRAM
     Route: 041
     Dates: start: 20171207, end: 20171207
  31. MAGNESIUM SULFATE. [Concomitant]
     Active Substance: MAGNESIUM SULFATE
     Dosage: 5 GRAM
     Route: 041
     Dates: start: 20171216, end: 20171217
  32. FUROSEMIDE SODIUM [Concomitant]
     Active Substance: FUROSEMIDE SODIUM
     Indication: OEDEMA PERIPHERAL
     Dosage: 40 MILLIGRAM
     Route: 048
     Dates: start: 20171120, end: 20171120
  33. FUROSEMIDE SODIUM [Concomitant]
     Active Substance: FUROSEMIDE SODIUM
     Dosage: 40 MILLIGRAM
     Route: 048
     Dates: start: 20171126, end: 20171126
  34. FUROSEMIDE SODIUM [Concomitant]
     Active Substance: FUROSEMIDE SODIUM
     Dosage: 20 MILLIGRAM
     Route: 041
     Dates: start: 20171208, end: 20171209
  35. NORMAL SALINE [Concomitant]
     Active Substance: SODIUM CHLORIDE
     Route: 041
  36. NORMAL SALINE [Concomitant]
     Active Substance: SODIUM CHLORIDE
     Route: 041
  37. VENETOCLAX. [Concomitant]
     Active Substance: VENETOCLAX
     Indication: ACUTE MYELOID LEUKAEMIA
     Dosage: 50 MILLIGRAM
     Route: 065
     Dates: start: 20171120, end: 20171120
  38. TRANEXAMIC ACID. [Concomitant]
     Active Substance: TRANEXAMIC ACID
     Dosage: 3000 MILLIGRAM
     Route: 048
     Dates: start: 20171211, end: 20171211
  39. CIPROFLOXACIN HYDROCHLORIDE. [Concomitant]
     Active Substance: CIPROFLOXACIN HYDROCHLORIDE
     Dosage: 1000 MILLIGRAM
     Route: 048
     Dates: start: 20171129, end: 20171207
  40. GLYCOPYRRONIUM BROMIDE [Concomitant]
     Active Substance: GLYCOPYRRONIUM
     Indication: RESPIRATORY DISORDER
     Dosage: .4 MILLIGRAM
     Route: 058
     Dates: start: 20171228, end: 20171228
  41. POTASSIUM CHLORIDE. [Concomitant]
     Active Substance: POTASSIUM CHLORIDE
     Indication: PROPHYLAXIS
     Dosage: 32 MILLIEQUIVALENTS
     Route: 048
     Dates: start: 20171114, end: 20171116
  42. OXYGEN. [Concomitant]
     Active Substance: OXYGEN
     Indication: DYSPNOEA
     Dosage: 2-3 LITERS
     Route: 045
     Dates: start: 20171122, end: 20171201
  43. MAGNESIUM SULFATE. [Concomitant]
     Active Substance: MAGNESIUM SULFATE
     Dosage: 5 GRAM
     Route: 041
     Dates: start: 20171127, end: 20171127
  44. FUROSEMIDE SODIUM [Concomitant]
     Active Substance: FUROSEMIDE SODIUM
     Indication: PROPHYLAXIS
     Dosage: 40 MILLIGRAM
     Route: 048
     Dates: start: 20171124, end: 20171124
  45. VENETOCLAX. [Concomitant]
     Active Substance: VENETOCLAX
     Dosage: 200 MILLIGRAM
     Route: 065
     Dates: start: 20171122, end: 20171217
  46. MORPHINE SULFATE. [Concomitant]
     Active Substance: MORPHINE SULFATE
     Indication: PAIN
     Dosage: 24 MILLIGRAM
     Route: 040
     Dates: start: 20171229, end: 20171230
  47. MAGNESIUM SULFATE. [Concomitant]
     Active Substance: MAGNESIUM SULFATE
     Dosage: 5 GRAM
     Route: 041
     Dates: start: 20171209, end: 20171209
  48. FUROSEMIDE SODIUM [Concomitant]
     Active Substance: FUROSEMIDE SODIUM
     Dosage: 20 MILLIGRAM
     Route: 040
     Dates: start: 20171213, end: 20171213
  49. FUROSEMIDE SODIUM [Concomitant]
     Active Substance: FUROSEMIDE SODIUM
     Dosage: 40 MILLIGRAM
     Route: 040
     Dates: start: 20171219, end: 20171224
  50. AZACITIDINE. [Suspect]
     Active Substance: AZACITIDINE
     Indication: ACUTE MYELOID LEUKAEMIA
     Dosage: 75 MILLIGRAM/SQ. METER
     Route: 058
     Dates: start: 20171120
  51. CIPROFLOXACIN HYDROCHLORIDE. [Concomitant]
     Active Substance: CIPROFLOXACIN HYDROCHLORIDE
     Dosage: 1000 MILLIGRAM
     Route: 048
     Dates: start: 20171211, end: 20171215
  52. QUETIAPINE FUMARATE. [Concomitant]
     Active Substance: QUETIAPINE FUMARATE
     Dosage: 50 MILLIGRAM
     Route: 048
     Dates: start: 20171214, end: 20171214
  53. QUETIAPINE FUMARATE. [Concomitant]
     Active Substance: QUETIAPINE FUMARATE
     Dosage: 75 MILLIGRAM
     Route: 048
     Dates: start: 20171215, end: 20171218
  54. POTASSIUM CHLORIDE. [Concomitant]
     Active Substance: POTASSIUM CHLORIDE
     Dosage: 40 MILLIEQUIVALENTS
     Route: 040
     Dates: start: 20171124, end: 20171124
  55. POTASSIUM CHLORIDE. [Concomitant]
     Active Substance: POTASSIUM CHLORIDE
     Dosage: 40 MILLIEQUIVALENTS
     Route: 040
     Dates: start: 20171209, end: 20171209
  56. MAGNESIUM SULFATE. [Concomitant]
     Active Substance: MAGNESIUM SULFATE
     Indication: PROPHYLAXIS
     Dosage: 5 GRAM
     Route: 041
     Dates: start: 20171121, end: 20171121
  57. FUROSEMIDE SODIUM [Concomitant]
     Active Substance: FUROSEMIDE SODIUM
     Indication: HYPERVOLAEMIA
     Dosage: 20 MILLIGRAM
     Route: 040
     Dates: start: 20171122, end: 20171122
  58. FUROSEMIDE SODIUM [Concomitant]
     Active Substance: FUROSEMIDE SODIUM
     Dosage: 40 MILLIGRAM
     Route: 040
     Dates: start: 20171127, end: 20171127
  59. TRANEXAMIC ACID. [Concomitant]
     Active Substance: TRANEXAMIC ACID
     Indication: HAEMORRHAGE PROPHYLAXIS
     Dosage: 1000 MILLIGRAM
     Route: 048
     Dates: start: 20171101, end: 20171109
  60. CODEINE PHOSPHATE [Concomitant]
     Active Substance: CODEINE PHOSPHATE
     Indication: PAIN
     Dosage: 120 MILLIGRAM
     Route: 048
     Dates: start: 20171226, end: 20171228
  61. DOCUSATE SODIUM. [Concomitant]
     Active Substance: DOCUSATE SODIUM
     Indication: CONSTIPATION PROPHYLAXIS
     Dosage: 200 MILLIGRAM
     Route: 048
     Dates: start: 20171122, end: 20171228
  62. VANCOMYCIN HYDROCHLORIDE. [Concomitant]
     Active Substance: VANCOMYCIN HYDROCHLORIDE
     Dosage: 3 GRAM
     Route: 041
     Dates: start: 20171113, end: 20171116
  63. QUETIAPINE FUMARATE. [Concomitant]
     Active Substance: QUETIAPINE FUMARATE
     Indication: CONFUSIONAL STATE
     Dosage: 25 MILLIGRAM
     Route: 048
     Dates: start: 20171212, end: 20171213
  64. FUROSEMIDE SODIUM [Concomitant]
     Active Substance: FUROSEMIDE SODIUM
     Indication: PREMEDICATION
     Dosage: 40 MILLIGRAM
     Route: 040
     Dates: start: 20171123, end: 20171123
  65. FUROSEMIDE SODIUM [Concomitant]
     Active Substance: FUROSEMIDE SODIUM
     Indication: PREMEDICATION
     Dosage: 20 MILLIGRAM
     Route: 040
     Dates: start: 20171124, end: 20171124
  66. FUROSEMIDE SODIUM [Concomitant]
     Active Substance: FUROSEMIDE SODIUM
     Dosage: 40 MILLIGRAM
     Route: 040
     Dates: start: 20171129, end: 20171129
  67. FUROSEMIDE SODIUM [Concomitant]
     Active Substance: FUROSEMIDE SODIUM
     Dosage: 40 MILLIGRAM
     Route: 040
     Dates: start: 20171216, end: 20171216

REACTIONS (2)
  - Impaired self-care [Recovered/Resolved]
  - Pneumonia [Fatal]

NARRATIVE: CASE EVENT DATE: 20171207
